FAERS Safety Report 12557021 (Version 1)
Quarter: 2016Q3

REPORT INFORMATION
  Report Type: Spontaneous
  Country: GB (occurrence: GB)
  Receive Date: 20160714
  Receipt Date: 20160714
  Transmission Date: 20161109
  Serious: Yes (Other)
  Sender: FDA-Public Use
  Company Number: GB-TEVA-674389ACC

PATIENT

DRUGS (1)
  1. ALFUZOSIN [Suspect]
     Active Substance: ALFUZOSIN
     Route: 048

REACTIONS (5)
  - Urinary retention [Unknown]
  - Pollakiuria [Unknown]
  - Urinary incontinence [Unknown]
  - Drug ineffective [Unknown]
  - Poor quality sleep [Unknown]
